FAERS Safety Report 6768613-X (Version None)
Quarter: 2010Q2

REPORT INFORMATION
  Report Type: 
  Country: None (occurrence: None)
  Receive Date: 20100614
  Receipt Date: 20100604
  Transmission Date: 20101027
  Serious: Yes (Hospitalization)
  Sender: FDA-Public Use
  Company Number: SK-ROCHE-686038

PATIENT
  Sex: Male
  Weight: 64.6 kg

DRUGS (8)
  1. BEVACIZUMAB [Suspect]
     Indication: METASTATIC RENAL CELL CARCINOMA
     Route: 042
     Dates: start: 20081212, end: 20091230
  2. TEMSIROLIMUS [Suspect]
     Indication: METASTATIC RENAL CELL CARCINOMA
     Dosage: FORM: CONCENTRATE FOR SOLUTION FOR INFUSION.
     Route: 042
     Dates: start: 20081212
  3. VITACALCIN [Suspect]
     Indication: OSTEOPENIA
     Route: 048
     Dates: start: 20081023
  4. HYDROCORTISONE [Suspect]
     Indication: DRUG USE FOR UNKNOWN INDICATION
     Dosage: INDICATION NOT LEGIBLE.
     Route: 065
     Dates: start: 20081029, end: 20081227
  5. LOKREN [Concomitant]
     Indication: HYPERTENSION
     Dosage: PARTIALLY ILLEGIBLE DRUG NAME: 'LAEREN'
     Route: 048
     Dates: start: 19990101, end: 20100122
  6. MONOSAN [Concomitant]
     Indication: HYPERTENSION
     Route: 048
     Dates: start: 19900101
  7. ANAPYRIN [Concomitant]
     Dosage: PARTIALLY ILLEGIBLE DRUG NAME: 'ARIOOYCIN'
     Route: 048
     Dates: start: 20001023
  8. SIMCOR [Concomitant]
     Indication: DYSLIPIDAEMIA
     Route: 048
     Dates: start: 19990101

REACTIONS (3)
  - CARDIAC FAILURE [None]
  - HYPONATRAEMIA [None]
  - PNEUMONITIS [None]
